FAERS Safety Report 4350037-6 (Version None)
Quarter: 2004Q2

REPORT INFORMATION
  Report Type: 
  Country: None (occurrence: None)
  Receive Date: 20040429
  Receipt Date: 20040324
  Transmission Date: 20050107
  Serious: Yes (Other)
  Sender: FDA-Public Use
  Company Number: PHEH2004US03456

PATIENT
  Age: 76 Year
  Sex: Male
  Weight: 97 kg

DRUGS (4)
  1. ZOMETA [Suspect]
     Indication: PROSTATE CANCER METASTATIC
     Dosage: 4 MG MONTHLY
     Route: 042
     Dates: start: 20031001, end: 20040123
  2. SECTRAL [Concomitant]
     Dosage: 200 MG, QD
     Route: 048
     Dates: start: 19960101
  3. SULFADINE [Concomitant]
     Dosage: 1 UNK, QD
     Route: 048
     Dates: start: 19990101
  4. LUPRON [Concomitant]
     Indication: PROSTATE CANCER METASTATIC
     Dosage: EVERY 4 MONTHS
     Route: 030

REACTIONS (1)
  - RETINAL HAEMORRHAGE [None]
